FAERS Safety Report 8175235-5 (Version None)
Quarter: 2012Q1

REPORT INFORMATION
  Report Type: 
  Country: None (occurrence: None)
  Receive Date: 20120229
  Receipt Date: 20120227
  Transmission Date: 20120608
  Serious: Yes (Other)
  Sender: FDA-Public Use
  Company Number: CO-ABBOTT-12P-036-0909630-00

PATIENT
  Sex: Male
  Weight: 71 kg

DRUGS (1)
  1. HUMIRA [Suspect]
     Indication: ANKYLOSING SPONDYLITIS
     Route: 058
     Dates: start: 20111116, end: 20120215

REACTIONS (1)
  - DENTAL CARIES [None]
